FAERS Safety Report 20073223 (Version 1)
Quarter: 2021Q4

REPORT INFORMATION
  Report Type: Spontaneous
  Country: US (occurrence: US)
  Receive Date: 20211116
  Receipt Date: 20211116
  Transmission Date: 20220304
  Serious: Yes (Other)
  Sender: FDA-Public Use
  Company Number: US-GLAXOSMITHKLINE- US2021GSK233772

PATIENT
  Sex: Female

DRUGS (4)
  1. ZANTAC [Suspect]
     Active Substance: RANITIDINE HYDROCHLORIDE
     Indication: Hiatus hernia
     Dosage: 150 MG, TWICE A DAY
     Route: 065
     Dates: start: 198001, end: 201501
  2. ZANTAC [Suspect]
     Active Substance: RANITIDINE HYDROCHLORIDE
     Indication: Hiatus hernia
     Dosage: 150 MG,TWICE A DAY
     Route: 065
     Dates: start: 198001, end: 201501
  3. RANITIDINE [Suspect]
     Active Substance: RANITIDINE
     Indication: Hiatus hernia
     Dosage: 150 MG,TWO TIMES A DAY
     Route: 065
     Dates: start: 201501, end: 202101
  4. RANITIDINE [Suspect]
     Active Substance: RANITIDINE
     Indication: Hiatus hernia
     Dosage: 150 MG, TWO TIMES A DAY
     Route: 065
     Dates: start: 201501, end: 202101

REACTIONS (1)
  - Breast cancer [Unknown]
